FAERS Safety Report 4694758-4 (Version None)
Quarter: 2005Q2

REPORT INFORMATION
  Report Type: 
  Country: None (occurrence: None)
  Receive Date: 20050617
  Receipt Date: 20050601
  Transmission Date: 20051028
  Serious: Yes (Death, Hospitalization)
  Sender: FDA-Public Use
  Company Number: 2004-00477

PATIENT
  Age: 67 Year
  Sex: Male

DRUGS (5)
  1. VELCADE [Suspect]
     Indication: MANTLE CELL LYMPHOMA
     Dosage: 3.30 MG
     Dates: start: 20030521, end: 20030626
  2. PRILOSEC [Concomitant]
  3. CIPRO [Concomitant]
  4. STOOL SOFTENER (DOCUSATE SODIUM) [Concomitant]
  5. BENADRYL (SODIUM CITRATE, AMMONIUM CHLORIDE, MENTHOL, DIPHENHYDRAMINE [Concomitant]

REACTIONS (21)
  - ACUTE RESPIRATORY DISTRESS SYNDROME [None]
  - ALANINE AMINOTRANSFERASE INCREASED [None]
  - ARTHRALGIA [None]
  - ASPARTATE AMINOTRANSFERASE INCREASED [None]
  - BLOOD LACTATE DEHYDROGENASE INCREASED [None]
  - BLOOD PRESSURE INCREASED [None]
  - CENTRAL NERVOUS SYSTEM INFECTION [None]
  - CONFUSIONAL STATE [None]
  - DYSPNOEA [None]
  - ENCEPHALITIS [None]
  - GAIT DISTURBANCE [None]
  - GENERAL PHYSICAL HEALTH DETERIORATION [None]
  - HAEMORRHAGE INTRACRANIAL [None]
  - HALLUCINATION [None]
  - HERPES ZOSTER [None]
  - LUNG INFILTRATION [None]
  - MENINGEAL DISORDER [None]
  - MENTAL STATUS CHANGES [None]
  - RASH [None]
  - RESPIRATORY FAILURE [None]
  - URINARY TRACT INFECTION [None]
